FAERS Safety Report 16276827 (Version 2)
Quarter: 2019Q2

REPORT INFORMATION
  Report Type: Spontaneous
  Country: TR (occurrence: TR)
  Receive Date: 20190506
  Receipt Date: 20190516
  Transmission Date: 20190711
  Serious: Yes (Other)
  Sender: FDA-Public Use
  Company Number: TR-ABBVIE-19K-161-2764433-00

PATIENT
  Sex: Female
  Weight: 58 kg

DRUGS (2)
  1. HUMIRA [Suspect]
     Active Substance: ADALIMUMAB
     Route: 058
  2. HUMIRA [Suspect]
     Active Substance: ADALIMUMAB
     Indication: PSORIASIS
     Route: 058
     Dates: start: 2014, end: 20190429

REACTIONS (4)
  - Tooth infection [Recovering/Resolving]
  - Thyroid haemorrhage [Recovered/Resolved]
  - Product packaging quantity issue [Unknown]
  - Goitre [Recovered/Resolved]

NARRATIVE: CASE EVENT DATE: 2019
